FAERS Safety Report 5130613-3 (Version None)
Quarter: 2006Q4

REPORT INFORMATION
  Report Type: 
  Country: None (occurrence: None)
  Receive Date: 20061019
  Receipt Date: 20060905
  Transmission Date: 20070319
  Serious: Yes (Death)
  Sender: FDA-Public Use
  Company Number: US-BRISTOL-MYERS SQUIBB COMPANY-13500871

PATIENT
  Age: 36 Year
  Sex: Female

DRUGS (3)
  1. ABILIFY [Suspect]
     Indication: PSYCHOTIC DISORDER
     Dosage: 1 DOSAGE FORM = 5 MG DAILY STARTING 24MAR06 INCREASED TO 10 MG DAILY ON 18APR06
     Route: 048
     Dates: start: 20060324, end: 20060712
  2. ABILIFY [Suspect]
     Indication: SCHIZOAFFECTIVE DISORDER
     Dosage: 1 DOSAGE FORM = 5 MG DAILY STARTING 24MAR06 INCREASED TO 10 MG DAILY ON 18APR06
     Route: 048
     Dates: start: 20060324, end: 20060712
  3. DEPAKOTE ER [Concomitant]
     Dates: start: 20060324

REACTIONS (1)
  - DEATH [None]
